FAERS Safety Report 10337863 (Version 3)
Quarter: 2014Q4

REPORT INFORMATION
  Report Type: Spontaneous
  Country: JP (occurrence: JP)
  Receive Date: 20140724
  Receipt Date: 20141208
  Transmission Date: 20150528
  Serious: Yes (Disabling)
  Sender: FDA-Public Use
  Company Number: JP-AMGEN-JPNSP2014054676

PATIENT
  Age: 88 Year
  Sex: Female

DRUGS (7)
  1. ZOMETA [Suspect]
     Active Substance: ZOLEDRONIC ACID
     Indication: PRODUCT USED FOR UNKNOWN INDICATION
     Dosage: UNK
     Route: 065
  2. RANMARK [Suspect]
     Active Substance: DENOSUMAB
     Indication: BONE LESION
     Dosage: 120 MG, UNK
     Route: 058
     Dates: start: 20120718, end: 20140611
  3. FEMARA [Concomitant]
     Active Substance: LETROZOLE
     Indication: METASTASIS
     Dosage: 2.5 MG, QD
     Route: 048
     Dates: end: 20120425
  4. UFT [Concomitant]
     Active Substance: TEGAFUR\URACIL
     Indication: METASTASIS
     Dosage: 200 MG, QD
     Route: 048
     Dates: start: 20130213
  5. AROMASIN [Concomitant]
     Active Substance: EXEMESTANE
     Indication: METASTASIS
     Dosage: 25 MG, QD
     Route: 048
     Dates: start: 20120425, end: 20130116
  6. ARIMIDEX [Concomitant]
     Active Substance: ANASTROZOLE
     Indication: METASTASIS
     Dosage: 1 MG, QD
     Route: 048
     Dates: start: 20130213
  7. FARESTON [Concomitant]
     Active Substance: TOREMIFENE CITRATE
     Indication: METASTASIS
     Dosage: 60 MG, QD
     Route: 048
     Dates: start: 20130116, end: 20130212

REACTIONS (1)
  - Osteonecrosis of jaw [Recovering/Resolving]

NARRATIVE: CASE EVENT DATE: 20140611
